FAERS Safety Report 8764991 (Version 2)
Quarter: 2013Q4

REPORT INFORMATION
  Report Type: Spontaneous
  Country: US (occurrence: US)
  Receive Date: 20120903
  Receipt Date: 20131101
  Transmission Date: 20140711
  Serious: No
  Sender: FDA-Public Use
  Company Number: US-009507513-1207USA012389

PATIENT
  Age: 55 Year
  Sex: Female

DRUGS (2)
  1. PEGINTRON [Suspect]
     Indication: HEPATITIS C
     Dosage: 150 MICROGRAM/ ONE INJECTION
     Dates: start: 201204
  2. HYDROCODONE [Suspect]

REACTIONS (2)
  - Confusional state [Unknown]
  - Dizziness [Unknown]
